FAERS Safety Report 12036882 (Version 4)
Quarter: 2016Q2

REPORT INFORMATION
  Report Type: Spontaneous
  Country: NL (occurrence: NL)
  Receive Date: 20160208
  Receipt Date: 20160509
  Transmission Date: 20160815
  Serious: Yes (Hospitalization)
  Sender: FDA-Public Use
  Company Number: NL-BEH-2016058666

PATIENT
  Age: 35 Year
  Sex: Female

DRUGS (9)
  1. RHEDQUIN (SANQUIN) [Concomitant]
     Route: 030
     Dates: start: 20160125, end: 20160125
  2. CYTOTEC [Suspect]
     Active Substance: MISOPROSTOL
     Dates: start: 20160226
  3. CYTOTEC [Suspect]
     Active Substance: MISOPROSTOL
     Dates: start: 20160226
  4. RHOPHYLAC [Suspect]
     Active Substance: HUMAN RHO(D) IMMUNE GLOBULIN
     Indication: FOETAL-MATERNAL HAEMORRHAGE
     Dosage: 8 SINGLE DOSES/SYRINGES, SLOW IV INJECTIONS 60 SECONDS PER 1000 IU
     Route: 042
     Dates: start: 20160126, end: 20160126
  5. CYTOTEC [Suspect]
     Active Substance: MISOPROSTOL
     Dates: start: 20160226
  6. CYTOTEC [Suspect]
     Active Substance: MISOPROSTOL
     Dates: start: 20160227
  7. CYTOTEC [Suspect]
     Active Substance: MISOPROSTOL
     Dates: start: 20160226
  8. CYTOTEC [Suspect]
     Active Substance: MISOPROSTOL
     Dates: start: 20160227
  9. RHEDQUIN (SANQUIN) [Concomitant]
     Dosage: WEEK 30
     Route: 030
     Dates: start: 20160112, end: 20160112

REACTIONS (6)
  - Haemolytic transfusion reaction [Recovered/Resolved]
  - Hypersensitivity [Recovered/Resolved]
  - Medication monitoring error [Recovered/Resolved]
  - Dose calculation error [Recovered/Resolved]
  - Intrauterine infection [Recovered/Resolved]
  - Pyrexia [Recovered/Resolved]

NARRATIVE: CASE EVENT DATE: 20160126
